FAERS Safety Report 20805193 (Version 1)
Quarter: 2022Q2

REPORT INFORMATION
  Report Type: Spontaneous
  Country: US (occurrence: US)
  Receive Date: 20220509
  Receipt Date: 20220509
  Transmission Date: 20220721
  Serious: Yes (Other)
  Sender: FDA-Public Use
  Company Number: US-AMERICAN REGENT INC-2022001285

PATIENT
  Age: 35 Year
  Sex: Female

DRUGS (1)
  1. FERRIC CARBOXYMALTOSE [Suspect]
     Active Substance: FERRIC CARBOXYMALTOSE
     Indication: Product used for unknown indication
     Dosage: UNK, SINGLE
     Route: 042

REACTIONS (5)
  - Maternal exposure during pregnancy [Unknown]
  - Chest pain [Unknown]
  - Dyspnoea [Unknown]
  - Heart rate increased [Unknown]
  - Urticaria [Unknown]
